FAERS Safety Report 25136115 (Version 1)
Quarter: 2025Q1

REPORT INFORMATION
  Report Type: Spontaneous
  Country: PT (occurrence: PT)
  Receive Date: 20250328
  Receipt Date: 20250328
  Transmission Date: 20250408
  Serious: Yes (Death, Hospitalization, Other)
  Sender: JOHNSON AND JOHNSON
  Company Number: PT-JNJFOC-20250373581

PATIENT
  Age: 73 Year
  Sex: Male

DRUGS (3)
  1. RYBREVANT [Suspect]
     Active Substance: AMIVANTAMAB-VMJW
     Indication: Non-small cell lung cancer
     Route: 065
  2. TAMSULOSIN [Concomitant]
     Active Substance: TAMSULOSIN
  3. FUROSEMIDE [Concomitant]
     Active Substance: FUROSEMIDE

REACTIONS (10)
  - Death [Fatal]
  - Syncope [Unknown]
  - Troponin I increased [Unknown]
  - Encephalopathy [Unknown]
  - Electroencephalogram abnormal [Unknown]
  - Clonal evolution [Unknown]
  - Change in sustained attention [Unknown]
  - Orthostatic intolerance [Unknown]
  - Autonomic nervous system imbalance [Unknown]
  - Infusion related reaction [Unknown]

NARRATIVE: CASE EVENT DATE: 20240801
